FAERS Safety Report 9412337 (Version 3)
Quarter: 2014Q1

REPORT INFORMATION
  Report Type: Spontaneous
  Country: US (occurrence: US)
  Receive Date: 20130722
  Receipt Date: 20140210
  Transmission Date: 20141002
  Serious: Yes (Other)
  Sender: FDA-Public Use
  Company Number: US-PFIZER INC-2013212375

PATIENT
  Age: 75 Year
  Sex: Female

DRUGS (13)
  1. LYRICA [Suspect]
     Dosage: 75 MG, 3X/DAY
  2. OXYCODONE [Concomitant]
     Dosage: UNK
  3. VALIUM [Concomitant]
     Dosage: UNK
  4. POTASSIUM [Concomitant]
     Dosage: UNK
  5. GABAPENTIN [Concomitant]
     Dosage: UNK
  6. FLUOXETINE [Concomitant]
     Dosage: UNK
  7. LOSARTAN [Concomitant]
     Dosage: UNK
  8. LIDODERM [Concomitant]
     Dosage: UNK
  9. MECLIZINE [Concomitant]
     Dosage: UNK
  10. ASA [Concomitant]
     Dosage: UNK
  11. PRAVASTATIN [Concomitant]
     Dosage: UNK
  12. B 12 [Concomitant]
     Dosage: UNK
  13. OMEPRAZOLE [Concomitant]
     Dosage: UNK

REACTIONS (2)
  - Skin cancer [Unknown]
  - Burning sensation [Unknown]
